FAERS Safety Report 18826226 (Version 1)
Quarter: 2021Q1

REPORT INFORMATION
  Report Type: Spontaneous
  Country: US (occurrence: US)
  Receive Date: 20210201
  Receipt Date: 20210201
  Transmission Date: 20210419
  Serious: No
  Sender: FDA-Public Use
  Company Number: US-ABBVIE-20K-163-3382295-00

PATIENT
  Age: 33 Year
  Sex: Male

DRUGS (3)
  1. HUMIRA [Suspect]
     Active Substance: ADALIMUMAB
     Indication: COLITIS ULCERATIVE
     Route: 058
     Dates: start: 2019
  2. HUMIRA [Suspect]
     Active Substance: ADALIMUMAB
     Indication: INFLAMMATORY BOWEL DISEASE
  3. HUMIRA [Suspect]
     Active Substance: ADALIMUMAB
     Indication: CONGENITAL SPONDYLOLISTHESIS

REACTIONS (11)
  - Injection site papule [Recovering/Resolving]
  - Injection site haemorrhage [Unknown]
  - Off label use [Not Recovered/Not Resolved]
  - Injection site pain [Recovering/Resolving]
  - Device issue [Recovered/Resolved]
  - Injection site erythema [Recovering/Resolving]
  - Needle issue [Unknown]
  - Feeling of despair [Unknown]
  - Wrong technique in product usage process [Recovered/Resolved]
  - Incorrect dose administered [Unknown]
  - Scab [Not Recovered/Not Resolved]

NARRATIVE: CASE EVENT DATE: 2019
